FAERS Safety Report 6259118-3 (Version None)
Quarter: 2009Q3

REPORT INFORMATION
  Report Type: 
  Country: None (occurrence: None)
  Receive Date: 20090702
  Receipt Date: 20090617
  Transmission Date: 20100115
  Serious: Yes (Other)
  Sender: FDA-Public Use
  Company Number: 2009AL001761

PATIENT
  Age: 32 Year
  Sex: Male

DRUGS (7)
  1. DIGOXIN [Suspect]
     Indication: ATRIAL FIBRILLATION
     Dosage: PO
     Route: 048
  2. AMIODARONE HCL [Concomitant]
  3. BUMEX [Concomitant]
  4. COREG [Concomitant]
  5. COZAAR [Concomitant]
  6. POTASSIUM CHLORIDE [Concomitant]
  7. ALDACTONE [Concomitant]

REACTIONS (11)
  - ABDOMINAL DISTENSION [None]
  - ANGER [None]
  - ANHEDONIA [None]
  - ANXIETY [None]
  - COUGH [None]
  - ECONOMIC PROBLEM [None]
  - FATIGUE [None]
  - INJURY [None]
  - PAIN [None]
  - UNEVALUABLE EVENT [None]
  - WEIGHT INCREASED [None]
